FAERS Safety Report 6100916-4 (Version None)
Quarter: 2009Q1

REPORT INFORMATION
  Report Type: 
  Country: None (occurrence: None)
  Receive Date: 20090304
  Receipt Date: 20090227
  Transmission Date: 20090719
  Serious: Yes (Other)
  Sender: FDA-Public Use
  Company Number: US-JNJFOC-20090300370

PATIENT
  Sex: Female
  Weight: 87.54 kg

DRUGS (1)
  1. FENTANYL TRANSDERMAL SYSTEM [Suspect]
     Indication: BACK PAIN
     Route: 062

REACTIONS (3)
  - APPLICATION SITE RASH [None]
  - HAEMOGLOBIN DECREASED [None]
  - WRONG TECHNIQUE IN DRUG USAGE PROCESS [None]
